FAERS Safety Report 8868450 (Version 1)
Quarter: 2012Q4

REPORT INFORMATION
  Report Type: 
  Country: US (occurrence: US)
  Receive Date: 20121026
  Receipt Date: 20121026
  Transmission Date: 20130627
  Serious: No
  Sender: FDA-Public Use
  Company Number: US-AMGEN-USASP2012041696

PATIENT
  Age: 55 Year
  Sex: Female
  Weight: 68.93 kg

DRUGS (3)
  1. ENBREL [Suspect]
     Indication: RHEUMATOID ARTHRITIS
     Dosage: 50 mg, qwk
     Route: 058
  2. MOTRIN [Concomitant]
     Dosage: 800 mg, UNK
     Route: 048
  3. SIMPONI [Concomitant]
     Dosage: 50 mg, UNK
     Route: 058

REACTIONS (1)
  - Drug ineffective [Unknown]
